FAERS Safety Report 12208868 (Version 4)
Quarter: 2016Q2

REPORT INFORMATION
  Report Type: Spontaneous
  Country: US (occurrence: US)
  Receive Date: 20160324
  Receipt Date: 20160524
  Transmission Date: 20160815
  Serious: Yes (Hospitalization)
  Sender: FDA-Public Use
  Company Number: US-ACTELION PHARMACEUTICALS US, INC.-A-NJ2016-133440

PATIENT
  Age: 49 Year
  Sex: Female

DRUGS (8)
  1. RIOCIGUAT [Concomitant]
     Active Substance: RIOCIGUAT
     Dosage: 200 MG, UNK
  2. UPTRAVI [Suspect]
     Active Substance: SELEXIPAG
     Dosage: 1000 MCG, BID
     Route: 048
     Dates: start: 20160427, end: 20160504
  3. UPTRAVI [Suspect]
     Active Substance: SELEXIPAG
     Dosage: 1200 MCG, BID
     Route: 048
     Dates: start: 20160505
  4. CITALOPRAM [Concomitant]
     Active Substance: CITALOPRAM HYDROBROMIDE
     Dosage: 20 MG, QD
     Dates: start: 2014
  5. UPTRAVI [Suspect]
     Active Substance: SELEXIPAG
     Indication: PULMONARY ARTERIAL HYPERTENSION
     Dosage: 200 MCG, BID
     Route: 048
     Dates: start: 20160308
  6. UPTRAVI [Suspect]
     Active Substance: SELEXIPAG
     Dosage: 400 MCG, BID
     Route: 048
  7. GLYBURIDE. [Suspect]
     Active Substance: GLYBURIDE
     Indication: TYPE 2 DIABETES MELLITUS
     Dosage: UNK, QD
     Route: 065
  8. VENTOLIN HFA [Concomitant]
     Active Substance: ALBUTEROL SULFATE
     Dosage: 108 MCG/ACT

REACTIONS (7)
  - Pain in extremity [Unknown]
  - Pain in jaw [Unknown]
  - Arthralgia [Unknown]
  - Hypoglycaemia [Recovered/Resolved]
  - Condition aggravated [Unknown]
  - Blood glucose decreased [Recovered/Resolved]
  - Herpes zoster [Unknown]

NARRATIVE: CASE EVENT DATE: 20160308
